FAERS Safety Report 25707942 (Version 1)
Quarter: 2025Q3

REPORT INFORMATION
  Report Type: Spontaneous
  Country: US (occurrence: US)
  Receive Date: 20250820
  Receipt Date: 20250820
  Transmission Date: 20251021
  Serious: Yes (Other)
  Sender: NOVO NORDISK
  Company Number: US-NOVOPROD-1500437

PATIENT
  Sex: Female

DRUGS (6)
  1. OZEMPIC [Suspect]
     Active Substance: SEMAGLUTIDE
     Indication: Type 2 diabetes mellitus
     Dosage: 0.25 MG, QW
     Route: 058
  2. OZEMPIC [Suspect]
     Active Substance: SEMAGLUTIDE
     Dosage: 0.5 MG, QW
     Route: 058
  3. OZEMPIC [Suspect]
     Active Substance: SEMAGLUTIDE
     Dosage: 1 MG, QW
     Route: 058
  4. DONEPEZIL [Concomitant]
     Active Substance: DONEPEZIL
     Indication: Hypertension
     Dosage: 5 MG, QD
  5. MEMANTINE [Concomitant]
     Active Substance: MEMANTINE
     Indication: Hypertension
     Dosage: 5 MG, QD
  6. LISINOPRIL [Concomitant]
     Active Substance: LISINOPRIL
     Indication: Hypertension
     Dosage: 5 MG, QD

REACTIONS (5)
  - Dementia [Unknown]
  - Apathy [Unknown]
  - Neuropsychological symptoms [Unknown]
  - Decreased appetite [Unknown]
  - Weight decreased [Unknown]
